FAERS Safety Report 26045001 (Version 1)
Quarter: 2025Q4

REPORT INFORMATION
  Report Type: Spontaneous
  Country: EU (occurrence: EU)
  Receive Date: 20251114
  Receipt Date: 20251114
  Transmission Date: 20260118
  Serious: Yes (Hospitalization, Other)
  Sender: MUNDIPHARMA EDO
  Company Number: EU-NAPPMUNDI-GBR-2025-0130391

PATIENT
  Age: 67 Year
  Sex: Male

DRUGS (3)
  1. REZAFUNGIN ACETATE [Suspect]
     Active Substance: REZAFUNGIN ACETATE
     Indication: Candida infection
     Dosage: UNK
     Route: 065
  2. FLUCONAZOLE [Suspect]
     Active Substance: FLUCONAZOLE
     Indication: Candida infection
     Dosage: UNK
     Route: 065
  3. AMPHOTERICIN B [Suspect]
     Active Substance: AMPHOTERICIN B
     Indication: Candida infection
     Dosage: UNK
     Route: 065

REACTIONS (2)
  - Acute kidney injury [Unknown]
  - Skin lesion [Not Recovered/Not Resolved]

NARRATIVE: CASE EVENT DATE: 20250101
